FAERS Safety Report 25995806 (Version 1)
Quarter: 2025Q4

REPORT INFORMATION
  Report Type: Report from Study
  Country: US (occurrence: US)
  Receive Date: 20251104
  Receipt Date: 20251104
  Transmission Date: 20260117
  Serious: Yes (Other)
  Sender: ABBVIE
  Company Number: US-ABBVIE-6528748

PATIENT
  Age: 77 Year
  Sex: Male

DRUGS (1)
  1. RESTASIS [Suspect]
     Active Substance: CYCLOSPORINE
     Indication: Product used for unknown indication
     Dosage: 0.05% EYE EMULSION INSTILL ONE DROP IN EACH EYE TWICE A DAY, ROA: OPHTHALMIC
     Route: 065

REACTIONS (1)
  - Bile duct stone [Recovering/Resolving]
